FAERS Safety Report 6709620-2 (Version None)
Quarter: 2010Q2

REPORT INFORMATION
  Report Type: 
  Country: None (occurrence: None)
  Receive Date: 20100504
  Receipt Date: 20100423
  Transmission Date: 20101027
  Serious: Yes (Hospitalization)
  Sender: FDA-Public Use
  Company Number: IT-PFIZER INC-2010051991

PATIENT
  Age: 73 Year
  Sex: Female

DRUGS (7)
  1. ADRIBLASTINA [Suspect]
     Indication: HODGKIN'S DISEASE
     Dosage: 40 MG CYCLIC
     Route: 042
     Dates: start: 20090730, end: 20091023
  2. BLEOMYCIN [Suspect]
     Indication: HODGKIN'S DISEASE
     Dosage: 15 MG CYCLIC
     Route: 042
     Dates: start: 20090730, end: 20091023
  3. VINBLASTINE SULFATE [Suspect]
     Indication: HODGKIN'S DISEASE
     Dosage: 6 MG CYCLIC
     Route: 042
     Dates: start: 20090730, end: 20091023
  4. DETICENE [Suspect]
     Indication: HODGKIN'S DISEASE
     Dosage: 600  MG, CYCLIC
     Route: 042
     Dates: start: 20090730, end: 20091023
  5. ZOFRAN [Concomitant]
     Dosage: 4 MG
     Route: 042
     Dates: start: 20090730, end: 20091023
  6. NEULASTA [Concomitant]
     Dosage: 6 MG
     Route: 058
     Dates: start: 20090731, end: 20091024
  7. ZESTRIL [Concomitant]
     Dosage: 20 MG
     Route: 048

REACTIONS (2)
  - HYPERPYREXIA [None]
  - PNEUMONIA [None]
